FAERS Safety Report 8765980 (Version 2)
Quarter: 2013Q4

REPORT INFORMATION
  Report Type: Spontaneous
  Country: IS (occurrence: IS)
  Receive Date: 20120904
  Receipt Date: 20131031
  Transmission Date: 20140711
  Serious: Yes (Hospitalization)
  Sender: FDA-Public Use
  Company Number: IS-009507513-1208ISL010526

PATIENT
  Age: 55 Year
  Sex: Male

DRUGS (8)
  1. ZOCOR [Suspect]
     Indication: MYOCARDIAL ISCHAEMIA
     Dosage: 80 MG, QD
     Route: 048
  2. CELECOXIB [Concomitant]
  3. GLUCOPHAGE [Concomitant]
  4. PLAVIX [Concomitant]
     Dosage: UNK
  5. ASPIRIN [Concomitant]
  6. SELOKEN [Concomitant]
  7. OMEGA-3 MARINE TRIGLYCERIDES [Concomitant]
  8. ACETAMINOPHEN (+) CODEINE [Concomitant]
     Dosage: 1-5 TABLETS,DAILY AS NEEDED
     Route: 048

REACTIONS (2)
  - Hepatotoxicity [Recovered/Resolved]
  - Jaundice [Recovered/Resolved]
